FAERS Safety Report 12103909 (Version 2)
Quarter: 2016Q1

REPORT INFORMATION
  Report Type: Spontaneous
  Country: CA (occurrence: CA)
  Receive Date: 20160223
  Receipt Date: 20160307
  Transmission Date: 20160526
  Serious: Yes (Life-Threatening, Hospitalization, Other)
  Sender: FDA-Public Use
  Company Number: CA-ROCHE-1714084

PATIENT
  Age: 52 Year
  Sex: Female

DRUGS (16)
  1. XOLAIR [Suspect]
     Active Substance: OMALIZUMAB
     Indication: ASTHMA
     Route: 058
     Dates: start: 20160205
  2. LIPITOR [Concomitant]
     Active Substance: ATORVASTATIN CALCIUM
  3. SPIRIVA [Concomitant]
     Active Substance: TIOTROPIUM BROMIDE MONOHYDRATE
     Route: 065
  4. COVERSYL [Concomitant]
     Active Substance: PERINDOPRIL
  5. FUROSEMIDE. [Concomitant]
     Active Substance: FUROSEMIDE
  6. HUMALOG [Concomitant]
     Active Substance: INSULIN LISPRO
  7. NEXIAM [Concomitant]
     Active Substance: ESOMEPRAZOLE
  8. ZENHALE [Concomitant]
     Active Substance: FORMOTEROL FUMARATE\MOMETASONE FUROATE
  9. ACTONEL [Concomitant]
     Active Substance: RISEDRONATE SODIUM
  10. BRICANYL [Concomitant]
     Active Substance: TERBUTALINE SULFATE
  11. LEVEMIR [Concomitant]
     Active Substance: INSULIN DETEMIR
  12. L-THYROXINE [Concomitant]
     Active Substance: LEVOTHYROXINE
  13. METFORMIN [Concomitant]
     Active Substance: METFORMIN HYDROCHLORIDE
  14. PREDNISONE. [Concomitant]
     Active Substance: PREDNISONE
  15. ALVESCO [Concomitant]
     Active Substance: CICLESONIDE
  16. EZETROL [Concomitant]
     Active Substance: EZETIMIBE

REACTIONS (8)
  - Movement disorder [Unknown]
  - Fall [Unknown]
  - Asthma [Recovering/Resolving]
  - Dyspnoea [Unknown]
  - Respiratory distress [Unknown]
  - Colitis [Recovered/Resolved]
  - Syncope [Recovered/Resolved]
  - Asthenia [Unknown]

NARRATIVE: CASE EVENT DATE: 20160208
